FAERS Safety Report 13691526 (Version 1)
Quarter: 2017Q2

REPORT INFORMATION
  Report Type: Spontaneous
  Country: US (occurrence: US)
  Receive Date: 20170626
  Receipt Date: 20170626
  Transmission Date: 20170830
  Serious: Yes (Other)
  Sender: FDA-Public Use
  Company Number: US-ROCHE-629872

PATIENT
  Age: 71 Year
  Sex: Female
  Weight: 61.2 kg

DRUGS (3)
  1. CELLCEPT [Suspect]
     Active Substance: MYCOPHENOLATE MOFETIL\MYCOPHENOLATE MOFETIL HYDROCHLORIDE
     Indication: AUTOIMMUNE DISORDER
     Route: 048
     Dates: start: 20090304, end: 20090423
  2. LIPITOR [Concomitant]
     Active Substance: ATORVASTATIN CALCIUM
     Indication: HYPERCHOLESTEROLAEMIA
     Dosage: FREQUENCY REPORTED AS 1 X
     Route: 048
     Dates: start: 2000, end: 20090423
  3. VITAMIN [Concomitant]
     Active Substance: VITAMINS
     Dosage: DRUG REPORTED: PRESERVATION VITAMINS; FREQUENCY: ONCE
     Route: 065
     Dates: start: 2007, end: 20090423

REACTIONS (4)
  - Hepatotoxicity [Recovering/Resolving]
  - Fatigue [Unknown]
  - Asthenia [Unknown]
  - Hepatocellular injury [Recovering/Resolving]

NARRATIVE: CASE EVENT DATE: 20090402
